FAERS Safety Report 10589490 (Version 1)
Quarter: 2014Q4

REPORT INFORMATION
  Report Type: Spontaneous
  Country: AT (occurrence: None)
  Receive Date: 20141114
  Receipt Date: 20141114
  Transmission Date: 20150529
  Serious: Yes (Hospitalization)
  Sender: FDA-Public Use
  Company Number: 2014DEPAT00610

PATIENT
  Age: 15 Year
  Sex: Male
  Weight: 47.4 kg

DRUGS (11)
  1. EUSAPRIM (CO-TRIMOXAZOLE) [Concomitant]
  2. THYREX (LEVOTHYROXINE SODIUM) [Concomitant]
  3. FOLIC ACID (FOIC ACID) [Concomitant]
  4. THALIDOMIDE (THALIDOMIDE) [Concomitant]
     Active Substance: THALIDOMIDE
  5. CYCLOPHOSPHAMIDE (CYCLOPHOSPHAMIDE) [Concomitant]
     Active Substance: CYCLOPHOSPHAMIDE
  6. ETOPOSIDE (ETOPOSIDE PHOSPHATE) [Concomitant]
     Active Substance: ETOPOSIDE
  7. DEPOCYTE (CYTARABINE) LIPOSOME INJECTABLE SUSPENSION, MG [Suspect]
     Active Substance: CYTARABINE
     Indication: MEDULLOBLASTOMA
     Dates: start: 20140425, end: 20141008
  8. FENOFIBRATE (FENOFIBRATE) [Concomitant]
  9. CELECOXIB (CELECOXIB) [Concomitant]
     Active Substance: CELECOXIB
  10. NEXIUM [Concomitant]
     Active Substance: ESOMEPRAZOLE MAGNESIUM
  11. LEVETIRACETAM (LEVETIRACETAM) [Concomitant]
     Active Substance: LEVETIRACETAM

REACTIONS (1)
  - Diplopia [None]

NARRATIVE: CASE EVENT DATE: 20141028
